FAERS Safety Report 22254387 (Version 3)
Quarter: 2023Q2

REPORT INFORMATION
  Report Type: Report from Study
  Country: US (occurrence: US)
  Receive Date: 20230426
  Receipt Date: 20230517
  Transmission Date: 20230722
  Serious: Yes (Hospitalization)
  Sender: FDA-Public Use
  Company Number: US-INSMED, INC.-2023-00310-US

PATIENT
  Sex: Female

DRUGS (1)
  1. ARIKAYCE [Suspect]
     Active Substance: AMIKACIN
     Indication: Mycobacterium avium complex infection
     Dosage: 590 MILLIGRAM, TIW
     Route: 055
     Dates: start: 20230124, end: 202304

REACTIONS (11)
  - Hospitalisation [Unknown]
  - Vital capacity decreased [Unknown]
  - Sinusitis [Unknown]
  - COVID-19 [Not Recovered/Not Resolved]
  - Sputum increased [Not Recovered/Not Resolved]
  - Cough [Recovered/Resolved]
  - Cough [Not Recovered/Not Resolved]
  - Dysphonia [Unknown]
  - Dyspnoea [Unknown]
  - Off label use [Unknown]
  - Wrong technique in device usage process [Unknown]

NARRATIVE: CASE EVENT DATE: 20230101
